FAERS Safety Report 5720165-9 (Version None)
Quarter: 2008Q2

REPORT INFORMATION
  Report Type: 
  Country: None (occurrence: None)
  Receive Date: 20080428
  Receipt Date: 20070828
  Transmission Date: 20081010
  Serious: No
  Sender: FDA-Public Use
  Company Number: US-AMGEN-US240946

PATIENT

DRUGS (3)
  1. SENSIPAR [Suspect]
     Indication: HYPERPARATHYROIDISM SECONDARY
  2. NIFEDIPINE [Concomitant]
     Route: 065
  3. LASIX [Concomitant]
     Route: 065

REACTIONS (1)
  - TACHYCARDIA [None]
